FAERS Safety Report 8343031-1 (Version None)
Quarter: 2012Q2

REPORT INFORMATION
  Report Type: 
  Country: None (occurrence: None)
  Receive Date: 20120508
  Receipt Date: 20120423
  Transmission Date: 20120825
  Serious: Yes (Death)
  Sender: FDA-Public Use
  Company Number: PHHY2009KR51438

PATIENT
  Sex: Male
  Weight: 40 kg

DRUGS (1)
  1. EXJADE [Suspect]
     Indication: APLASTIC ANAEMIA
     Dosage: 1250 MG, DAILY
     Route: 048
     Dates: start: 20081118, end: 20090224

REACTIONS (4)
  - SERUM FERRITIN ABNORMAL [None]
  - VOMITING [None]
  - NAUSEA [None]
  - DEATH [None]
